FAERS Safety Report 6905714-7 (Version None)
Quarter: 2010Q3

REPORT INFORMATION
  Report Type: 
  Country: None (occurrence: None)
  Receive Date: 20100802
  Receipt Date: 20100715
  Transmission Date: 20110219
  Serious: Yes (Other)
  Sender: FDA-Public Use
  Company Number: AUR-APL-2010-01857

PATIENT
  Age: 77 Year
  Sex: Female
  Weight: 93 kg

DRUGS (3)
  1. HYDROCHLOROTHIAZIDE [Suspect]
     Indication: OEDEMA PERIPHERAL
  2. LIPITOR [Suspect]
     Indication: BLOOD CHOLESTEROL INCREASED
     Dosage: 10MG, DAILY, ORAL
     Route: 048
     Dates: end: 20100401
  3. LOTREL [Suspect]
     Indication: HYPERTENSION
     Dates: end: 20100401

REACTIONS (4)
  - MUSCULAR WEAKNESS [None]
  - MYALGIA [None]
  - OEDEMA PERIPHERAL [None]
  - SKIN EXFOLIATION [None]
